FAERS Safety Report 23509378 (Version 1)
Quarter: 2024Q1

REPORT INFORMATION
  Report Type: Spontaneous
  Country: JP (occurrence: JP)
  Receive Date: 20240210
  Receipt Date: 20240210
  Transmission Date: 20240410
  Serious: Yes (Hospitalization, Other)
  Sender: FDA-Public Use
  Company Number: JP-NOVITIUMPHARMA-2024JPNVP00124

PATIENT
  Age: 49 Year
  Sex: Female

DRUGS (4)
  1. HYDROXYCHLOROQUINE SULFATE [Suspect]
     Active Substance: HYDROXYCHLOROQUINE SULFATE
     Indication: Systemic lupus erythematosus
  2. HYDROXYCHLOROQUINE SULFATE [Suspect]
     Active Substance: HYDROXYCHLOROQUINE SULFATE
  3. PREDNISOLONE [Concomitant]
     Active Substance: PREDNISOLONE
     Indication: Systemic lupus erythematosus
  4. MYCOPHENOLATE MOFETIL [Concomitant]
     Active Substance: MYCOPHENOLATE MOFETIL
     Indication: Systemic lupus erythematosus

REACTIONS (3)
  - Cytomegalovirus infection reactivation [Recovering/Resolving]
  - Pneumonia cytomegaloviral [Recovering/Resolving]
  - Varicella zoster virus infection [Recovering/Resolving]
